FAERS Safety Report 25085349 (Version 1)
Quarter: 2025Q1

REPORT INFORMATION
  Report Type: Spontaneous
  Country: US (occurrence: None)
  Receive Date: 20250314
  Receipt Date: 20250314
  Transmission Date: 20250409
  Serious: Yes (Hospitalization, Disabling, Other)
  Sender: FDA-CTU
  Company Number: None

PATIENT
  Age: 50 Year
  Sex: Female

DRUGS (1)
  1. LEVAQUIN [Suspect]
     Active Substance: LEVOFLOXACIN
     Indication: Respiratory tract infection
     Dates: start: 20160901, end: 20161031

REACTIONS (9)
  - Shoulder operation [None]
  - Tendon operation [None]
  - Ophthalmic migraine [None]
  - Diplopia [None]
  - Dizziness [None]
  - Musculoskeletal disorder [None]
  - Neuroprosthesis implantation [None]
  - Rheumatoid arthritis [None]
  - Mobility decreased [None]

NARRATIVE: CASE EVENT DATE: 20161102
